FAERS Safety Report 15457435 (Version 1)
Quarter: 2018Q4

REPORT INFORMATION
  Report Type: Spontaneous
  Country: US (occurrence: US)
  Receive Date: 20181002
  Receipt Date: 20181002
  Transmission Date: 20190204
  Serious: No
  Sender: FDA-Public Use
  Company Number: US-ANIPHARMA-2018-US-004774

PATIENT
  Age: 22 Month
  Sex: Female
  Weight: 7.71 kg

DRUGS (1)
  1. ERYTHROMYCIN ETHYLSUCCINATE FOR ORAL SUSPENSION USP [Suspect]
     Active Substance: ERYTHROMYCIN ETHYLSUCCINATE
     Indication: NUTRITIONAL SUPPLEMENTATION
     Dosage: UNSPECIFIED DOSE
     Route: 050
     Dates: start: 201802

REACTIONS (2)
  - Off label use [Unknown]
  - Complication associated with device [Unknown]

NARRATIVE: CASE EVENT DATE: 201712
